FAERS Safety Report 25804809 (Version 1)
Quarter: 2025Q3

REPORT INFORMATION
  Report Type: Spontaneous
  Country: CN (occurrence: CN)
  Receive Date: 20250915
  Receipt Date: 20250915
  Transmission Date: 20251021
  Serious: Yes (Other)
  Sender: AMGEN
  Company Number: CN-AMGEN-CHNSP2025180836

PATIENT
  Age: 83 Year
  Sex: Female
  Weight: 51.8 kg

DRUGS (4)
  1. XGEVA [Suspect]
     Active Substance: DENOSUMAB
     Indication: Bladder cancer
     Route: 058
     Dates: start: 20250829, end: 20250829
  2. SINTILIMAB [Suspect]
     Active Substance: SINTILIMAB
     Indication: Bladder cancer
     Route: 040
     Dates: start: 20250826, end: 20250826
  3. GEMCITABINE HYDROCHLORIDE [Suspect]
     Active Substance: GEMCITABINE HYDROCHLORIDE
     Indication: Bladder cancer
     Route: 040
     Dates: start: 20250827, end: 20250828
  4. CISPLATIN [Suspect]
     Active Substance: CISPLATIN
     Indication: Bladder cancer
     Route: 040
     Dates: start: 20250827, end: 20250827

REACTIONS (1)
  - Myelosuppression [Recovering/Resolving]

NARRATIVE: CASE EVENT DATE: 20250901
